FAERS Safety Report 7203924-5 (Version None)
Quarter: 2010Q4

REPORT INFORMATION
  Report Type: 
  Country: None (occurrence: None)
  Receive Date: 20101230
  Receipt Date: 20101223
  Transmission Date: 20110411
  Serious: No
  Sender: FDA-Public Use
  Company Number: US-PFIZER INC-2010178850

PATIENT
  Sex: Male
  Weight: 77.098 kg

DRUGS (3)
  1. CADUET [Suspect]
     Indication: BLOOD PRESSURE INCREASED
     Dosage: AMLODIPINE 5 MG/ATORVASTATIN 10MG
     Route: 048
     Dates: start: 20091201, end: 20101222
  2. CADUET [Suspect]
     Indication: CARDIAC DISORDER
  3. CADUET [Suspect]
     Indication: BLOOD CHOLESTEROL ABNORMAL

REACTIONS (4)
  - DIARRHOEA [None]
  - FLATULENCE [None]
  - GASTRIC DISORDER [None]
  - GASTROINTESTINAL DISORDER [None]
